FAERS Safety Report 18931847 (Version 1)
Quarter: 2021Q1

REPORT INFORMATION
  Report Type: Spontaneous
  Country: IR (occurrence: IR)
  Receive Date: 20210224
  Receipt Date: 20210224
  Transmission Date: 20210420
  Serious: Yes (Life-Threatening, Hospitalization, Other)
  Sender: FDA-Public Use
  Company Number: IR-LUPIN PHARMACEUTICALS INC.-2021-02200

PATIENT
  Age: 33 Year
  Sex: Male

DRUGS (1)
  1. TESTOSTERONE. [Suspect]
     Active Substance: TESTOSTERONE
     Indication: DRUG ABUSE
     Dosage: 250 MILLIGRAM (TWICE PER WEEK)
     Route: 030

REACTIONS (4)
  - Cardiogenic shock [Recovered/Resolved]
  - Drug abuse [Recovered/Resolved]
  - Aortic dissection [Recovered/Resolved]
  - Cardiac tamponade [Recovered/Resolved]
